FAERS Safety Report 4358293-5 (Version None)
Quarter: 2004Q2

REPORT INFORMATION
  Report Type: 
  Country: None (occurrence: None)
  Receive Date: 20040511
  Receipt Date: 20040511
  Transmission Date: 20050107
  Serious: Yes (Death, Life-Threatening, Hospitalization)
  Sender: FDA-Public Use
  Company Number: None

PATIENT
  Age: 85 Year
  Sex: Male
  Weight: 104.3 kg

DRUGS (21)
  1. GLIPIZIDE [Suspect]
  2. ISOSORBIDE DINITRATE [Concomitant]
  3. ASCORBIC ACID [Concomitant]
  4. CYANOCOBALAMINE [Concomitant]
  5. VITAMIN E [Concomitant]
  6. CARVEDILOL [Concomitant]
  7. CITALOPRAM [Concomitant]
  8. FUROSEMIDE [Concomitant]
  9. TERAZOSIN HCL [Concomitant]
  10. DIGOXIN [Concomitant]
  11. NITROGLYCERIN [Concomitant]
  12. LORATADINE [Concomitant]
  13. KETOCONAZOLE [Concomitant]
  14. DICLOFENAC [Concomitant]
  15. MISOPROSTOL [Concomitant]
  16. ASPIRIN [Concomitant]
  17. SIMVASTATIN [Concomitant]
  18. FLUOXETINE [Concomitant]
  19. HYDROCODONE 5.0 MG/ACETAMINOPHEN [Concomitant]
  20. .. [Concomitant]
  21. RANITIDINE [Concomitant]

REACTIONS (1)
  - HYPOGLYCAEMIA [None]
